FAERS Safety Report 10937066 (Version 2)
Quarter: 2015Q2

REPORT INFORMATION
  Report Type: Spontaneous
  Country: US (occurrence: US)
  Receive Date: 20150321
  Receipt Date: 20150525
  Transmission Date: 20150821
  Serious: No
  Sender: FDA-Public Use
  Company Number: US-JNJFOC-20131000735

PATIENT

DRUGS (16)
  1. TOPIRAMATE. [Suspect]
     Active Substance: TOPIRAMATE
     Indication: DRUG DEPENDENCE
     Dosage: 50 MG IN AM AND 100 MG IN PM; 5TH WEEK
     Route: 048
  2. TOPIRAMATE. [Suspect]
     Active Substance: TOPIRAMATE
     Indication: DRUG DEPENDENCE
     Dosage: 150 MG IN AM AND 150 MG IN PM; FROM 8TH WEEK TO 12TH WEEK
     Route: 048
  3. TOPIRAMATE. [Suspect]
     Active Substance: TOPIRAMATE
     Indication: ALCOHOLISM
     Dosage: 100 MG IN AM AND 100 MG IN PM; 6TH WEEK
     Route: 048
  4. TOPIRAMATE. [Suspect]
     Active Substance: TOPIRAMATE
     Indication: DRUG DEPENDENCE
     Dosage: 50 MG IN PM; SECOND WEEK
     Route: 048
  5. TOPIRAMATE. [Suspect]
     Active Substance: TOPIRAMATE
     Indication: ALCOHOLISM
     Dosage: 150 MG IN AM AND 150 MG IN PM; FROM 8TH WEEK TO 12TH WEEK
     Route: 048
  6. TOPIRAMATE. [Suspect]
     Active Substance: TOPIRAMATE
     Indication: DRUG DEPENDENCE
     Dosage: 100 MG IN AM AND 100 MG IN PM; 6TH WEEK
     Route: 048
  7. TOPIRAMATE. [Suspect]
     Active Substance: TOPIRAMATE
     Indication: DRUG DEPENDENCE
     Dosage: 100 MG IN AM AND 150 MG IN PM; 7TH WEEK
     Route: 048
  8. TOPIRAMATE. [Suspect]
     Active Substance: TOPIRAMATE
     Indication: DRUG DEPENDENCE
     Dosage: 25 MG IN PM; FIRST WEEK
     Route: 048
  9. TOPIRAMATE. [Suspect]
     Active Substance: TOPIRAMATE
     Indication: ALCOHOLISM
     Dosage: 100 MG IN AM AND 150 MG IN PM; 7TH WEEK
     Route: 048
  10. TOPIRAMATE. [Suspect]
     Active Substance: TOPIRAMATE
     Indication: DRUG DEPENDENCE
     Dosage: 75 MG IN PM; THIRD WEEK
     Route: 048
  11. TOPIRAMATE. [Suspect]
     Active Substance: TOPIRAMATE
     Indication: ALCOHOLISM
     Dosage: 50 MG IN PM; SECOND WEEK
     Route: 048
  12. TOPIRAMATE. [Suspect]
     Active Substance: TOPIRAMATE
     Indication: ALCOHOLISM
     Dosage: 75 MG IN PM; THIRD WEEK
     Route: 048
  13. TOPIRAMATE. [Suspect]
     Active Substance: TOPIRAMATE
     Indication: DRUG DEPENDENCE
     Dosage: 25 MG IN AM AND 75 MG IN PM; 4TH WEEK
     Route: 048
  14. TOPIRAMATE. [Suspect]
     Active Substance: TOPIRAMATE
     Indication: ALCOHOLISM
     Dosage: 50 MG IN AM AND 100 MG IN PM; 5TH WEEK
     Route: 048
  15. TOPIRAMATE. [Suspect]
     Active Substance: TOPIRAMATE
     Indication: ALCOHOLISM
     Dosage: 25 MG IN PM; FIRST WEEK
     Route: 048
  16. TOPIRAMATE. [Suspect]
     Active Substance: TOPIRAMATE
     Indication: ALCOHOLISM
     Dosage: 25 MG IN AM AND 75 MG IN PM; 4TH WEEK
     Route: 048

REACTIONS (9)
  - Paraesthesia [Unknown]
  - Imprisonment [Unknown]
  - Product use issue [Unknown]
  - Headache [Unknown]
  - Wrong technique in drug usage process [Unknown]
  - Somnolence [Unknown]
  - Sedation [Unknown]
  - Treatment noncompliance [Unknown]
  - Dry mouth [Unknown]
